FAERS Safety Report 13739132 (Version 4)
Quarter: 2017Q3

REPORT INFORMATION
  Report Type: Spontaneous
  Country: US (occurrence: US)
  Receive Date: 20170710
  Receipt Date: 20170816
  Transmission Date: 20171127
  Serious: Yes (Other)
  Sender: FDA-Public Use
  Company Number: US-SAOL THERAPEUTICS-2017SAO00950

PATIENT
  Age: 56 Year
  Sex: Female
  Weight: 82.54 kg

DRUGS (16)
  1. BACLOFEN. [Suspect]
     Active Substance: BACLOFEN
     Dosage: 906 ?G, \DAY
     Route: 037
     Dates: end: 20170721
  2. AMPYRA [Concomitant]
     Active Substance: DALFAMPRIDINE
     Dosage: 10 MG, 2X/DAY
  3. RITALIN [Concomitant]
     Active Substance: METHYLPHENIDATE HYDROCHLORIDE
     Dosage: 5 MG, 2X/DAY
  4. BACLOFEN. [Suspect]
     Active Substance: BACLOFEN
     Dosage: 900 ?G, \DAY
  5. LOVAZA [Concomitant]
     Active Substance: OMEGA-3-ACID ETHYL ESTERS
     Dosage: 2 G, 2X/DAY
  6. BACLOFEN. [Suspect]
     Active Substance: BACLOFEN
     Dosage: 400 ?G, \DAY
     Route: 037
  7. BACLOFEN. [Suspect]
     Active Substance: BACLOFEN
     Dosage: UNK
     Route: 037
     Dates: start: 2010
  8. BACLOFEN. [Suspect]
     Active Substance: BACLOFEN
     Dosage: 766 ?G, \DAY
     Route: 037
     Dates: start: 20170722
  9. GABLOFEN [Suspect]
     Active Substance: BACLOFEN
     Indication: MUSCLE SPASTICITY
     Dosage: 823.9 ?G, \DAY
     Route: 037
  10. BIOTIN [Concomitant]
     Active Substance: BIOTIN
     Dosage: 10 MG, 2X/DAY
  11. DIAZEPAM. [Concomitant]
     Active Substance: DIAZEPAM
     Dosage: 5 MG, UP TO 2X/DAY AS NEEDED
  12. CONCERTA [Concomitant]
     Active Substance: METHYLPHENIDATE HYDROCHLORIDE
     Dosage: 36 MG, 1X/DAY
  13. VITAMIN B COMPLEX [Concomitant]
     Active Substance: CYANOCOBALAMIN\DEXPANTHENOL\NIACINAMIDE\PYRIDOXINE HYDROCHLORIDE\RIBOFLAVIN 5^-PHOSPHATE SODIUM\THIAMINE HYDROCHLORIDE\VITAMIN B COMPLEX
     Dosage: UNK, 1X/DAY
  14. BACLOFEN. [Suspect]
     Active Substance: BACLOFEN
     Dosage: 200 ?G, \DAY
  15. VITAMIN D3 [Concomitant]
     Active Substance: CHOLECALCIFEROL
     Dosage: 1000 IU, 1X/DAY
  16. CELEXA [Concomitant]
     Active Substance: CITALOPRAM HYDROBROMIDE
     Dosage: 40 MG, 1X/DAY

REACTIONS (13)
  - Multiple sclerosis [Unknown]
  - Hypotonia [Recovered/Resolved]
  - Muscular weakness [Recovered/Resolved]
  - Therapy non-responder [Unknown]
  - Confusional state [Recovered/Resolved]
  - Unresponsive to stimuli [Recovered/Resolved]
  - Mental status changes [Recovered/Resolved]
  - Underdose [Not Recovered/Not Resolved]
  - Tremor [Recovered/Resolved]
  - Device infusion issue [Unknown]
  - Drug withdrawal syndrome [Recovered/Resolved]
  - Overdose [Not Recovered/Not Resolved]
  - Somnolence [Recovered/Resolved]

NARRATIVE: CASE EVENT DATE: 201611
